FAERS Safety Report 5669248-2 (Version None)
Quarter: 2008Q1

REPORT INFORMATION
  Report Type: 
  Country: None (occurrence: None)
  Receive Date: 20080317
  Receipt Date: 20080310
  Transmission Date: 20080703
  Serious: Yes (Hospitalization)
  Sender: FDA-Public Use
  Company Number: DE-ROCHE-552077

PATIENT
  Age: 65 Year
  Sex: Male
  Weight: 59 kg

DRUGS (1)
  1. CAPECITABINE [Suspect]
     Indication: METASTATIC GASTRIC CANCER
     Dosage: STARTING DAY 1 TILL DAY 15 NEXT CYCLE STARTS AT DAY 22 ACCORDING TO THE STUDY PROTOCOL.
     Route: 048
     Dates: start: 20080120

REACTIONS (1)
  - GENERAL PHYSICAL HEALTH DETERIORATION [None]
